FAERS Safety Report 13076401 (Version 1)
Quarter: 2016Q4

REPORT INFORMATION
  Report Type: Spontaneous
  Country: US (occurrence: US)
  Receive Date: 20161229
  Receipt Date: 20161229
  Transmission Date: 20170207
  Serious: Yes (Hospitalization)
  Sender: FDA-Public Use
  Company Number: None

PATIENT
  Age: 49 Year
  Sex: Female
  Weight: 87.9 kg

DRUGS (1)
  1. GADAVIST [Suspect]
     Active Substance: GADOBUTROL
     Indication: NUCLEAR MAGNETIC RESONANCE IMAGING
     Dosage: 4.8 MMOL (0.05 MMOL/KG) IVP X 2 DOSES
     Dates: start: 20161101

REACTIONS (4)
  - Throat irritation [None]
  - Hypersensitivity [None]
  - Chest discomfort [None]
  - Somnolence [None]

NARRATIVE: CASE EVENT DATE: 20161101
